FAERS Safety Report 21354219 (Version 1)
Quarter: 2022Q3

REPORT INFORMATION
  Report Type: Spontaneous
  Country: US (occurrence: None)
  Receive Date: 20220919
  Receipt Date: 20220919
  Transmission Date: 20221026
  Serious: Yes (Other)
  Sender: FDA-Public Use
  Company Number: None

PATIENT
  Age: 4 Month
  Sex: Female
  Weight: 80.1 kg

DRUGS (5)
  1. BEBTELOVIMAB [Suspect]
     Active Substance: BEBTELOVIMAB
     Indication: COVID-19
     Dosage: OTHER QUANTITY : 1 INJECTION(S);?OTHER FREQUENCY : 1TIME;?
     Route: 042
     Dates: start: 20220914, end: 20220914
  2. Propranolol 80 mg [Concomitant]
  3. Euthyroid 50mcg [Concomitant]
  4. ZYRTEC [Concomitant]
     Active Substance: CETIRIZINE HYDROCHLORIDE
  5. vitamins + Vit D [Concomitant]

REACTIONS (3)
  - Dizziness [None]
  - Hypoaesthesia [None]
  - Drug ineffective [None]

NARRATIVE: CASE EVENT DATE: 20220914
